FAERS Safety Report 8161716-7 (Version None)
Quarter: 2012Q1

REPORT INFORMATION
  Report Type: 
  Country: None (occurrence: None)
  Receive Date: 20120224
  Receipt Date: 20110126
  Transmission Date: 20120608
  Serious: No
  Sender: FDA-Public Use
  Company Number: US-BRISTOL-MYERS SQUIBB COMPANY-15514334

PATIENT
  Sex: Female

DRUGS (2)
  1. GLUCOPHAGE [Suspect]
     Dosage: 1 DF:2 TABS 1 IN MORNING,AND ONE IN EVENING.
  2. GLIPIZIDE [Suspect]
     Dosage: 1 DF: 1 UNIT NOT SPECIFIED

REACTIONS (1)
  - BLOOD GLUCOSE FLUCTUATION [None]
